FAERS Safety Report 25026035 (Version 1)
Quarter: 2025Q1

REPORT INFORMATION
  Report Type: Report from Study
  Country: GB (occurrence: GB)
  Receive Date: 20250301
  Receipt Date: 20250301
  Transmission Date: 20250409
  Serious: Yes (Other)
  Sender: TEVA
  Company Number: XI-TEVA-VS-3303171

PATIENT
  Age: 36 Year
  Sex: Female

DRUGS (1)
  1. COPAXONE [Suspect]
     Active Substance: GLATIRAMER ACETATE
     Indication: Multiple sclerosis
     Route: 058

REACTIONS (11)
  - Dyspnoea [Unknown]
  - Panic attack [Unknown]
  - Malaise [Unknown]
  - Dizziness [Unknown]
  - Chest discomfort [Unknown]
  - Chest pain [Unknown]
  - Product dose omission issue [Unknown]
  - Hot flush [Unknown]
  - Pain [Unknown]
  - Skin burning sensation [Unknown]
  - Facial pain [Unknown]
